FAERS Safety Report 21878587 (Version 1)
Quarter: 2023Q1

REPORT INFORMATION
  Report Type: Spontaneous
  Country: US (occurrence: None)
  Receive Date: 20230117
  Receipt Date: 20230117
  Transmission Date: 20230417
  Serious: No
  Sender: FDA-Public Use
  Company Number: None

PATIENT
  Age: 38 Year
  Sex: Female
  Weight: 69 kg

DRUGS (1)
  1. TERBINAFINE HYDROCHLORIDE [Suspect]
     Active Substance: TERBINAFINE HYDROCHLORIDE
     Indication: Onychomycosis
     Dates: start: 20220606, end: 20221011

REACTIONS (9)
  - Rash pruritic [None]
  - Urticaria [None]
  - Oropharyngeal pain [None]
  - Dysphagia [None]
  - Fatigue [None]
  - Chills [None]
  - Urticaria [None]
  - Lip swelling [None]
  - Insomnia [None]

NARRATIVE: CASE EVENT DATE: 20221011
